FAERS Safety Report 12998902 (Version 1)
Quarter: 2016Q4

REPORT INFORMATION
  Report Type: Spontaneous
  Country: US (occurrence: US)
  Receive Date: 20161205
  Receipt Date: 20161205
  Transmission Date: 20170207
  Serious: Yes (Hospitalization)
  Sender: FDA-Public Use
  Company Number: COL_25163_2016

PATIENT
  Age: 64 Year
  Sex: Female

DRUGS (4)
  1. COLGATE CAVITY PROTECTION TOOTH [Suspect]
     Active Substance: SODIUM MONOFLUOROPHOSPHATE
     Indication: DENTAL DISORDER PROPHYLAXIS
     Dosage: ONE BRUSH STROKE/ONCE/
     Route: 048
     Dates: start: 20161116, end: 20161116
  2. COLGATE CAVITY PROTECTION TOOTH [Suspect]
     Active Substance: SODIUM MONOFLUOROPHOSPHATE
     Dosage: NI/NI/
     Route: 048
  3. COLGATE TARTAR CONTROL WHITENING CRISP MINT [Suspect]
     Active Substance: SODIUM FLUORIDE
     Indication: DENTAL DISORDER PROPHYLAXIS
     Dosage: NI/NI/
     Route: 048
     Dates: start: 20161114, end: 20161114
  4. COLGATE TARTAR CONTROL WHITENING CRISP MINT [Suspect]
     Active Substance: SODIUM FLUORIDE
     Dosage: NI/NI/
     Route: 048

REACTIONS (6)
  - Cough [Recovered/Resolved]
  - Loss of consciousness [Recovered/Resolved]
  - Throat tightness [Recovered/Resolved]
  - Hypersensitivity [Recovered/Resolved]
  - Syncope [Recovered/Resolved]
  - Reaction to drug excipients [None]

NARRATIVE: CASE EVENT DATE: 20161114
